FAERS Safety Report 12560775 (Version 1)
Quarter: 2016Q3

REPORT INFORMATION
  Report Type: Spontaneous
  Country: US (occurrence: US)
  Receive Date: 20160715
  Receipt Date: 20160715
  Transmission Date: 20161109
  Serious: No
  Sender: FDA-Public Use
  Company Number: US-TEVA-674861USA

PATIENT
  Age: 15 Year
  Sex: Male

DRUGS (1)
  1. QVAR [Suspect]
     Active Substance: BECLOMETHASONE DIPROPIONATE
     Indication: SLEEP DISORDER
     Dates: start: 201601, end: 201605

REACTIONS (2)
  - Product use issue [Unknown]
  - Loose tooth [Unknown]

NARRATIVE: CASE EVENT DATE: 2016
